FAERS Safety Report 6389355-9 (Version None)
Quarter: 2009Q4

REPORT INFORMATION
  Report Type: 
  Country: None (occurrence: None)
  Receive Date: 20091006
  Receipt Date: 20090925
  Transmission Date: 20100525
  Serious: Yes (Hospitalization)
  Sender: FDA-Public Use
  Company Number: TR-RANBAXY-2009RR-27464

PATIENT
  Age: 21 Year
  Sex: Male

DRUGS (3)
  1. PROZAC [Suspect]
     Indication: DEPRESSION
     Dosage: 10 MG, QD
  2. CYCLOSPORINE [Suspect]
     Dosage: 200 MG, QD
  3. ACITRETIN [Suspect]
     Dosage: 35 MG, QD

REACTIONS (2)
  - DRUG INTERACTION [None]
  - PSORIASIS [None]
